FAERS Safety Report 6965483-1 (Version None)
Quarter: 2010Q3

REPORT INFORMATION
  Report Type: 
  Country: None (occurrence: None)
  Receive Date: 20100903
  Receipt Date: 20100823
  Transmission Date: 20110219
  Serious: Yes (Hospitalization)
  Sender: FDA-Public Use
  Company Number: B0672708A

PATIENT
  Age: 83 Year
  Sex: Female

DRUGS (4)
  1. FONDAPARINUX SODIUM [Suspect]
     Dosage: 7.5MG PER DAY
     Route: 058
  2. PIRIBEDIL [Concomitant]
     Dosage: 20MG PER DAY
     Route: 065
  3. BROMAZEPAM [Concomitant]
     Dosage: 3MG PER DAY
     Route: 065
  4. FUROSEMIDE [Concomitant]
     Dosage: 20MG PER DAY
     Route: 065

REACTIONS (13)
  - ANAEMIA [None]
  - BLOOD CREATININE INCREASED [None]
  - GAIT DISTURBANCE [None]
  - HAEMATOMA [None]
  - HAEMORRHAGE [None]
  - HYPOKALAEMIA [None]
  - INFLAMMATION [None]
  - NEUTROPHIL COUNT INCREASED [None]
  - OEDEMA PERIPHERAL [None]
  - PAIN IN EXTREMITY [None]
  - PARESIS [None]
  - THROMBOSIS [None]
  - WRONG DRUG ADMINISTERED [None]
